FAERS Safety Report 10965722 (Version 1)
Quarter: 2015Q1

REPORT INFORMATION
  Report Type: Spontaneous
  Country: US (occurrence: None)
  Receive Date: 20150327
  Receipt Date: 20150327
  Transmission Date: 20150721
  Serious: Yes (Disabling)
  Sender: FDA-Public Use
  Company Number: None

PATIENT
  Age: 37 Year
  Sex: Female
  Weight: 49.9 kg

DRUGS (6)
  1. DIGESTIVE ENZYMES [Concomitant]
     Active Substance: UNSPECIFIED INGREDIENT
  2. BENADRYL [Concomitant]
     Active Substance: DIPHENHYDRAMINE HYDROCHLORIDE
  3. LEVOFLOXACIN. [Suspect]
     Active Substance: LEVOFLOXACIN
     Indication: PNEUMONIA
     Dosage: 1 PILL, ONCE DAILY, TAKEN BY MOUTH
     Route: 048
     Dates: start: 20130220, end: 20130225
  4. CALCIUM/VIT. D MAGNESIUM [Concomitant]
  5. ZYRTEC LIQUID [Concomitant]
  6. MULTIVITAMIN [Concomitant]
     Active Substance: VITAMINS

REACTIONS (12)
  - Arthralgia [None]
  - Neuropathy peripheral [None]
  - Anxiety [None]
  - Food allergy [None]
  - Fatigue [None]
  - Panic attack [None]
  - Multiple chemical sensitivity [None]
  - Allergy to chemicals [None]
  - Hypersensitivity [None]
  - General physical health deterioration [None]
  - Palpitations [None]
  - Visual impairment [None]

NARRATIVE: CASE EVENT DATE: 20130220
